FAERS Safety Report 10581626 (Version 4)
Quarter: 2015Q1

REPORT INFORMATION
  Report Type: Spontaneous
  Country: US (occurrence: US)
  Receive Date: 20141113
  Receipt Date: 20150224
  Transmission Date: 20150720
  Serious: Yes (Hospitalization, Congenital Anomaly, Other)
  Sender: FDA-Public Use
  Company Number: US-ELI_LILLY_AND_COMPANY-US201411002662

PATIENT
  Age: 0 Day

DRUGS (6)
  1. FLINTSTONES COMPLETE [Concomitant]
     Route: 064
  2. ZITHROMAX [Concomitant]
     Active Substance: AZITHROMYCIN DIHYDRATE
     Dosage: 1000 MG, SINGLE
     Route: 064
     Dates: start: 20030124
  3. AMOXIL                             /00249601/ [Concomitant]
     Active Substance: AMOXICILLIN
     Dosage: 500 MG, TID
     Route: 064
  4. PROZAC [Suspect]
     Active Substance: FLUOXETINE HYDROCHLORIDE
     Indication: PRODUCT USED FOR UNKNOWN INDICATION
     Dosage: 20 MG QD
     Route: 064
     Dates: start: 20001003
  5. METRONIDAZOLE. [Concomitant]
     Active Substance: METRONIDAZOLE
     Dosage: 250 MG, TID
     Route: 064
     Dates: start: 20030118
  6. PROMETHAZINE [Concomitant]
     Active Substance: PROMETHAZINE\PROMETHAZINE HYDROCHLORIDE
     Dosage: 25 MG, PRN
     Route: 064

REACTIONS (8)
  - Congenital cardiovascular anomaly [Unknown]
  - Birth trauma [Unknown]
  - Foetal exposure during pregnancy [Recovered/Resolved]
  - Apgar score low [Recovered/Resolved]
  - Shoulder dystocia [Recovered/Resolved]
  - Umbilical cord around neck [Recovered/Resolved]
  - Neonatal respiratory distress syndrome [Unknown]
  - Persistent foetal circulation [Unknown]

NARRATIVE: CASE EVENT DATE: 20030723
